FAERS Safety Report 4306975-3 (Version None)
Quarter: 2004Q1

REPORT INFORMATION
  Report Type: 
  Country: None (occurrence: None)
  Receive Date: 20040226
  Receipt Date: 20040226
  Transmission Date: 20041129
  Serious: Yes (Hospitalization)
  Sender: FDA-Public Use
  Company Number: None

PATIENT
  Age: 61 Year
  Sex: Male
  Weight: 91.23 kg

DRUGS (14)
  1. METOCLOPRAMIDE [Suspect]
     Indication: NAUSEA
     Dosage: 10 MG Q 3 HR
     Dates: start: 20040215, end: 20040217
  2. METOCLOPRAMIDE [Suspect]
     Indication: VOMITING
     Dosage: 10 MG Q 3 HR
     Dates: start: 20040215, end: 20040217
  3. ONDANSETRON [Suspect]
     Indication: NAUSEA
     Dosage: 4 MG IV X 2 DOSES
     Route: 042
     Dates: start: 20040215
  4. ONDANSETRON [Suspect]
     Indication: VOMITING
     Dosage: 4 MG IV X 2 DOSES
     Route: 042
     Dates: start: 20040215
  5. AMPICILLIN [Concomitant]
  6. ASPIRIN [Concomitant]
  7. METOPROLOL [Concomitant]
  8. HYDROMORPHONE [Concomitant]
  9. METOCLOPRAMIDE [Concomitant]
  10. PANTOPRAZOLE [Concomitant]
  11. ACETAMINOPHEN [Concomitant]
  12. GENTAMICIN [Concomitant]
  13. GLYBURIDE [Concomitant]
  14. REGULAR INSULIN [Concomitant]

REACTIONS (3)
  - DRUG INEFFECTIVE [None]
  - HALLUCINATION, VISUAL [None]
  - HYPNAGOGIC HALLUCINATION [None]
